FAERS Safety Report 23033824 (Version 1)
Quarter: 2023Q4

REPORT INFORMATION
  Report Type: Spontaneous
  Country: ES (occurrence: ES)
  Receive Date: 20231005
  Receipt Date: 20231005
  Transmission Date: 20240109
  Serious: Yes (Other)
  Sender: FDA-Public Use
  Company Number: ES-FreseniusKabi-FK202315767

PATIENT
  Age: 47 Year

DRUGS (13)
  1. CARBOPLATIN [Suspect]
     Active Substance: CARBOPLATIN
     Indication: Ovarian cancer
     Dosage: SECOND LINE?SIX CYCLES
     Dates: start: 201608, end: 201612
  2. CARBOPLATIN [Suspect]
     Active Substance: CARBOPLATIN
     Dosage: FOURTH LINE?FIVE CYCLES
     Dates: start: 201801, end: 20180409
  3. PACLITAXEL [Suspect]
     Active Substance: PACLITAXEL
     Indication: Ovarian cancer
     Dosage: FIRST LINE?EVERY 21 DAYS ?SIX CYCLES?BETWEEN AUGUST AND DECEMBER 2016
  4. PACLITAXEL [Suspect]
     Active Substance: PACLITAXEL
     Dosage: SECOND LINE?EVERY 21 DAYS ?SIX CYCLES?BETWEEN OCTOBER 2014 AND LATE JANUARY 2015
  5. BEVACIZUMAB [Concomitant]
     Active Substance: BEVACIZUMAB
     Indication: Ovarian cancer
     Dosage: SIX CYCLES?FROM FEBRUARY 2015  UNTIL FEBRUARY 2016
  6. BEVACIZUMAB [Concomitant]
     Active Substance: BEVACIZUMAB
     Dosage: FIFTH AND POSTERIOR LINES?EVERY 21 DAYS?TOTAL OF 26 CYCLES, FROM MAY 2018 TO DECEMBER 2019
  7. OLAPARIB [Concomitant]
     Active Substance: OLAPARIB
     Indication: Ovarian cancer
     Dosage: 400 MG/12 H BY MOUTH)?SECOND LINE?SIXTH CYCLE, THE DOSE WAS DECREASED TO 0.9 MG/M2 + PLD 25 MG/M2
     Dates: start: 20161026
  8. OLAPARIB [Concomitant]
     Active Substance: OLAPARIB
     Dosage: 10 CYCLES UP TO OCTOBER 2017
     Dates: start: 201710
  9. TRABECTEDIN [Concomitant]
     Active Substance: TRABECTEDIN
     Indication: Ovarian cancer
     Dosage: (1.1 MG/M2) + PLD (30 MG/M2) EVERY 21 DAYS WAS INITIATED.?THIRD LINE
     Dates: start: 201704
  10. GEMCITABINE [Concomitant]
     Active Substance: GEMCITABINE
     Indication: Ovarian cancer
     Dosage: DAYS 1 AND 8?EVERY 21 DAYS?FIFTH AND POSTERIOR LINES?TOTAL OF 26 CYCLES, FROM MAY 2018 TO DECEMBER 2
     Dates: start: 201704
  11. DOXORUBICIN HYDROCHLORIDE [Concomitant]
     Active Substance: DOXORUBICIN HYDROCHLORIDE
     Indication: Ovarian cancer
     Dosage: FROM THE SIXTH CYCLE, THE DOSE WAS DECREASED TO ?0.9 MG/M2 + PLD 25 MG/M2.?THIRD LINE
  12. DOXORUBICIN HYDROCHLORIDE [Concomitant]
     Active Substance: DOXORUBICIN HYDROCHLORIDE
     Dosage: EVERY 28 DAYS?FIFTH AND POSTERIOR LINES, RECEIVED THREE CYCLES UP TO MARCH 2020
  13. DOXORUBICIN HYDROCHLORIDE [Concomitant]
     Active Substance: DOXORUBICIN HYDROCHLORIDE
     Dosage: EVERY 21 DAYS WAS INITIATED. AFTER ?FOUR CYCLES (JULY 2017)?THIRD LINE

REACTIONS (10)
  - Ascites [Unknown]
  - Metastases to peritoneum [Unknown]
  - Neurotoxicity [Unknown]
  - Disease progression [Unknown]
  - Vomiting [Unknown]
  - Nausea [Unknown]
  - Anaemia [Unknown]
  - Asthenia [Unknown]
  - Decreased appetite [Unknown]
  - Hypersensitivity [Unknown]

NARRATIVE: CASE EVENT DATE: 20180426
